FAERS Safety Report 7471856-3 (Version None)
Quarter: 2011Q2

REPORT INFORMATION
  Report Type: 
  Country: None (occurrence: None)
  Receive Date: 20110511
  Receipt Date: 20100525
  Transmission Date: 20111010
  Serious: No
  Sender: FDA-Public Use
  Company Number: A0864742A

PATIENT
  Sex: Female

DRUGS (3)
  1. TYKERB [Suspect]
     Dosage: 1250MG PER DAY
     Route: 048
     Dates: start: 20100501
  2. FEMARA [Concomitant]
     Indication: HORMONE REPLACEMENT THERAPY
  3. RADIATION THERAPY [Concomitant]

REACTIONS (4)
  - DECREASED APPETITE [None]
  - CHANGE OF BOWEL HABIT [None]
  - DYSGEUSIA [None]
  - FATIGUE [None]
